FAERS Safety Report 18506157 (Version 1)
Quarter: 2020Q4

REPORT INFORMATION
  Report Type: Spontaneous
  Country: US (occurrence: US)
  Receive Date: 20201116
  Receipt Date: 20201116
  Transmission Date: 20210114
  Serious: No
  Sender: FDA-Public Use
  Company Number: US-PFIZER INC-2020445291

PATIENT
  Age: 78 Year
  Sex: Male
  Weight: 77.11 kg

DRUGS (1)
  1. INSPRA [Suspect]
     Active Substance: EPLERENONE
     Indication: CARDIAC DISORDER
     Dosage: 25 MG, 1X/DAY (25MG; TAKE ONCE DAILY BY MOUTH)
     Route: 048
     Dates: start: 2020, end: 202009

REACTIONS (3)
  - Breast tenderness [Recovering/Resolving]
  - Breast swelling [Recovering/Resolving]
  - Sleep disorder due to general medical condition, insomnia type [Recovering/Resolving]

NARRATIVE: CASE EVENT DATE: 2020
